FAERS Safety Report 6646659-X (Version None)
Quarter: 2010Q1

REPORT INFORMATION
  Report Type: 
  Country: None (occurrence: None)
  Receive Date: 20100309
  Receipt Date: 20100211
  Transmission Date: 20100710
  Serious: No
  Sender: FDA-Public Use
  Company Number: 2010SP008779

PATIENT
  Age: 47 Year
  Sex: Female

DRUGS (7)
  1. SAPHRIS [Suspect]
     Indication: SCHIZOPHRENIA
     Dosage: 5 MG ; BID ;
     Dates: start: 20100101
  2. KLONOPIN [Concomitant]
  3. WELLBUTRIN [Concomitant]
  4. TRAZODONE HCL [Concomitant]
  5. PERPHENAZINE [Concomitant]
  6. FORTEO CALCIUM [Concomitant]
  7. OXYBUTYNIN CHLORIDE [Concomitant]

REACTIONS (1)
  - CHEST PAIN [None]
